FAERS Safety Report 15658110 (Version 6)
Quarter: 2020Q1

REPORT INFORMATION
  Report Type: Report from Study
  Country: US (occurrence: US)
  Receive Date: 20181126
  Receipt Date: 20200311
  Transmission Date: 20200409
  Serious: Yes (Hospitalization, Other)
  Sender: FDA-Public Use
  Company Number: US-SAKK-2018SA319291AA

PATIENT
  Age: 44 Year
  Sex: Female

DRUGS (3)
  1. SOLU-MEDROL [Concomitant]
     Active Substance: METHYLPREDNISOLONE SODIUM SUCCINATE
     Dosage: 50 MG, QD
     Route: 042
  2. ALEMTUZUMAB [Suspect]
     Active Substance: ALEMTUZUMAB
     Dosage: 12 MG
     Route: 041
     Dates: start: 20161219, end: 20161223
  3. ALEMTUZUMAB [Suspect]
     Active Substance: ALEMTUZUMAB
     Indication: MULTIPLE SCLEROSIS
     Dosage: 12 MG, QD
     Route: 041
     Dates: start: 20171211, end: 20171213

REACTIONS (5)
  - Platelet count decreased [Unknown]
  - Immune thrombocytopenic purpura [Unknown]
  - Petechiae [Recovered/Resolved]
  - Autoimmune disorder [Unknown]
  - Gingival discolouration [Recovered/Resolved]

NARRATIVE: CASE EVENT DATE: 20181108
